FAERS Safety Report 7493071-X (Version None)
Quarter: 2011Q2

REPORT INFORMATION
  Report Type: 
  Country: None (occurrence: None)
  Receive Date: 20110520
  Receipt Date: 20110517
  Transmission Date: 20111010
  Serious: Yes (Other)
  Sender: FDA-Public Use
  Company Number: US-PFIZER INC-2011106405

PATIENT

DRUGS (1)
  1. GEODON [Suspect]
     Dosage: BETWEEN 120MG AND 160MG, DAILY

REACTIONS (1)
  - TARDIVE DYSKINESIA [None]
